FAERS Safety Report 18628494 (Version 1)
Quarter: 2020Q4

REPORT INFORMATION
  Report Type: Spontaneous
  Country: US (occurrence: US)
  Receive Date: 20201217
  Receipt Date: 20201217
  Transmission Date: 20210114
  Serious: Yes (Hospitalization, Other)
  Sender: FDA-Public Use
  Company Number: US-BIOVITRUM-2020US7486

PATIENT
  Sex: Male
  Weight: 11 kg

DRUGS (5)
  1. SYNAGIS [Suspect]
     Active Substance: PALIVIZUMAB
     Indication: LOW BIRTH WEIGHT BABY
     Route: 030
  2. SYNAGIS [Suspect]
     Active Substance: PALIVIZUMAB
     Indication: PREMATURE BABY
  3. EPINEPHRINE HCL [Concomitant]
     Active Substance: EPINEPHRINE
  4. TADALAFIL. [Concomitant]
     Active Substance: TADALAFIL
  5. TRACLEER [Concomitant]
     Active Substance: BOSENTAN

REACTIONS (2)
  - Pneumonia [Unknown]
  - Off label use [Unknown]
